FAERS Safety Report 21830814 (Version 1)
Quarter: 2023Q1

REPORT INFORMATION
  Report Type: Spontaneous
  Country: US (occurrence: US)
  Receive Date: 20230106
  Receipt Date: 20230106
  Transmission Date: 20230418
  Serious: Yes (Hospitalization, Other)
  Sender: FDA-Public Use
  Company Number: DEX 2022-0095

PATIENT
  Age: 2 Month
  Sex: Female

DRUGS (31)
  1. DEXMEDETOMIDINE HYDROCHLORIDE [Suspect]
     Active Substance: DEXMEDETOMIDINE HYDROCHLORIDE
     Indication: Sedative therapy
     Dosage: 0.3 MICROGRAM/KILOGRAM, QH
     Route: 065
  2. DEXMEDETOMIDINE HYDROCHLORIDE [Suspect]
     Active Substance: DEXMEDETOMIDINE HYDROCHLORIDE
     Indication: Analgesic therapy
     Dosage: 0.5 MICROGRAM/KILOGRAM, QH
     Route: 065
  3. DEXMEDETOMIDINE HYDROCHLORIDE [Suspect]
     Active Substance: DEXMEDETOMIDINE HYDROCHLORIDE
     Dosage: TAPERED BY 0.1 MCG/KG/H EVERY 8 HOURS IN AN ALTERNATING SCHEDULE
     Route: 065
  4. KETAMINE [Suspect]
     Active Substance: KETAMINE
     Indication: Analgesic therapy
     Dosage: 5 MICROGRAM/KILOGRAM/MINUTE
     Route: 065
  5. KETAMINE [Suspect]
     Active Substance: KETAMINE
     Indication: Sedative therapy
     Dosage: INCREASED TO A PEAK DOSE OF 20 MCG/KG/MIN
     Route: 065
  6. KETAMINE [Suspect]
     Active Substance: KETAMINE
     Dosage: HOSPITAL D61 WEANED BY 5 MCG/KG/MIN UNTIL DISCONTINUATION ON HOSPITAL D62 (20 TO 15 TO 10 TO 5 TO 0
     Route: 065
  7. MORPHINE [Concomitant]
     Active Substance: MORPHINE
     Indication: Analgesic therapy
     Dosage: 0.1 MG/KG, QH, INFUSION
     Route: 065
  8. MORPHINE [Concomitant]
     Active Substance: MORPHINE
     Indication: Sedative therapy
     Dosage: ON HOSPITAL DAY 26, INFUSION AT 0.4 MG/KG/H
     Route: 065
  9. FENTANYL [Concomitant]
     Active Substance: FENTANYL
     Indication: Sedative therapy
     Dosage: 3 MICROGRAM/KILOGRAM, QH
     Route: 065
  10. FENTANYL [Concomitant]
     Active Substance: FENTANYL
     Indication: Analgesic therapy
  11. METHADONE [Concomitant]
     Active Substance: METHADONE HYDROCHLORIDE
     Indication: Sedative therapy
     Dosage: 0.1 MILLIGRAM/KILOGRAM, Q6H
     Route: 048
  12. METHADONE [Concomitant]
     Active Substance: METHADONE HYDROCHLORIDE
     Indication: Analgesic therapy
  13. DIAZEPAM [Concomitant]
     Active Substance: DIAZEPAM
     Indication: Analgesic therapy
     Dosage: 0.2 MILLIGRAM/KILOGRAM, Q6H
     Route: 065
  14. DIAZEPAM [Concomitant]
     Active Substance: DIAZEPAM
     Indication: Sedative therapy
  15. MIDAZOLAM [Concomitant]
     Active Substance: MIDAZOLAM
     Indication: Agitation
     Dosage: 0.05 MILLIGRAM/KILOGRAM, QH
     Route: 065
  16. MIDAZOLAM [Concomitant]
     Active Substance: MIDAZOLAM
     Indication: Sedative therapy
  17. MIDAZOLAM [Concomitant]
     Active Substance: MIDAZOLAM
     Indication: Analgesic therapy
  18. CLONIDINE [Concomitant]
     Active Substance: CLONIDINE
     Indication: Analgesic therapy
     Dosage: 2 MICROGRAM/KILOGRAM, Q8H
     Route: 065
  19. CLONIDINE [Concomitant]
     Active Substance: CLONIDINE
     Indication: Sedative therapy
  20. HYDROMORPHONE [Concomitant]
     Active Substance: HYDROMORPHONE
     Indication: Sedative therapy
     Dosage: 0.04 MICROGRAM/KILOGRAM, QH
     Route: 065
  21. HYDROMORPHONE [Concomitant]
     Active Substance: HYDROMORPHONE
     Indication: Analgesic therapy
  22. HYDROCORTISONE [Concomitant]
     Active Substance: HYDROCORTISONE
     Indication: Ventricular dysfunction
     Dosage: UNK
     Route: 042
  23. HYDROCORTISONE [Concomitant]
     Active Substance: HYDROCORTISONE
     Indication: Haemodynamic instability
  24. LEVOTHYROXINE [Concomitant]
     Active Substance: LEVOTHYROXINE
     Indication: Ventricular dysfunction
     Dosage: UNKNOWN
     Route: 042
  25. LEVOTHYROXINE [Concomitant]
     Active Substance: LEVOTHYROXINE
     Indication: Haemodynamic instability
  26. EPINEPHRINE [Concomitant]
     Active Substance: EPINEPHRINE
     Indication: Ventricular dysfunction
     Dosage: UNKNOWN
     Route: 065
  27. EPINEPHRINE [Concomitant]
     Active Substance: EPINEPHRINE
     Indication: Haemodynamic instability
  28. VASOPRESSIN [Concomitant]
     Active Substance: VASOPRESSIN
     Indication: Ventricular dysfunction
     Dosage: UNKNOWN
     Route: 065
  29. VASOPRESSIN [Concomitant]
     Active Substance: VASOPRESSIN
     Indication: Haemodynamic instability
  30. SULFAMETHOXAZOLE\TRIMETHOPRIM [Concomitant]
     Active Substance: SULFAMETHOXAZOLE\TRIMETHOPRIM
     Indication: Stenotrophomonas test positive
     Dosage: UNKNOWN
     Route: 065
  31. MEROPENEM [Concomitant]
     Active Substance: MEROPENEM
     Indication: Enterobacter test positive
     Dosage: UNKNOWN
     Route: 065

REACTIONS (5)
  - Product administered to patient of inappropriate age [Unknown]
  - Drug withdrawal syndrome [Recovered/Resolved]
  - Agitation [Recovered/Resolved]
  - Exaggerated startle response [Recovered/Resolved]
  - Diarrhoea [Recovered/Resolved]
